FAERS Safety Report 24722155 (Version 3)
Quarter: 2025Q1

REPORT INFORMATION
  Report Type: Spontaneous
  Country: JP (occurrence: JP)
  Receive Date: 20241211
  Receipt Date: 20250320
  Transmission Date: 20250408
  Serious: Yes (Hospitalization, Disabling)
  Sender: ELI LILLY AND COMPANY
  Company Number: JP-ELI_LILLY_AND_COMPANY-JP202412003950AA

PATIENT
  Age: 23 Year
  Sex: Female
  Weight: 46 kg

DRUGS (2)
  1. MOUNJARO [Suspect]
     Active Substance: TIRZEPATIDE
     Indication: Off label use
     Dosage: 2.5 MG, WEEKLY (1/W)
     Route: 058
     Dates: start: 20241019, end: 20241111
  2. MOUNJARO [Suspect]
     Active Substance: TIRZEPATIDE
     Dosage: 5 MG, WEEKLY (1/W)
     Route: 058
     Dates: start: 20241112

REACTIONS (11)
  - Anorexia nervosa [Not Recovered/Not Resolved]
  - Hypoglycaemia [Recovered/Resolved]
  - Hypoglycaemia [Not Recovered/Not Resolved]
  - Weight decreased [Not Recovered/Not Resolved]
  - Ketosis [Not Recovered/Not Resolved]
  - Off label use [Unknown]
  - Amenorrhoea [Unknown]
  - Inappropriate schedule of product administration [Unknown]
  - Hypophagia [Unknown]
  - Vomiting [Unknown]
  - Nausea [Unknown]

NARRATIVE: CASE EVENT DATE: 20241022
